FAERS Safety Report 5773038-X (Version None)
Quarter: 2008Q2

REPORT INFORMATION
  Report Type: 
  Country: None (occurrence: None)
  Receive Date: 20080613
  Receipt Date: 20080603
  Transmission Date: 20081010
  Serious: Yes (Other)
  Sender: FDA-Public Use
  Company Number: US-PFIZER INC-2008048699

PATIENT
  Sex: Female
  Weight: 97.5 kg

DRUGS (9)
  1. LYRICA [Suspect]
     Indication: NEUROPATHY PERIPHERAL
     Route: 048
     Dates: start: 20080101, end: 20080501
  2. HUMALOG [Concomitant]
  3. LANTUS [Concomitant]
  4. LISINOPRIL [Concomitant]
  5. VERAPAMIL [Concomitant]
  6. TOPROL-XL [Concomitant]
  7. CLONIDINE [Concomitant]
  8. LASIX [Concomitant]
  9. SYNTHROID [Concomitant]

REACTIONS (2)
  - ACTIVITIES OF DAILY LIVING IMPAIRED [None]
  - CONFUSIONAL STATE [None]
